FAERS Safety Report 7832939-9 (Version None)
Quarter: 2011Q4

REPORT INFORMATION
  Report Type: 
  Country: None (occurrence: None)
  Receive Date: 20111019
  Receipt Date: 20110916
  Transmission Date: 20120403
  Serious: Yes (Other)
  Sender: FDA-Public Use
  Company Number: 20110676

PATIENT
  Age: 63 Year
  Sex: Male
  Weight: 74.8435 kg

DRUGS (4)
  1. KETOROLAC TROMETHAMINE [Suspect]
     Indication: PAIN
     Dosage: 15 CC PER PATIENT
  2. KETOROLAC TROMETHAMINE [Suspect]
     Indication: NEPHROLITHIASIS
     Dosage: 15 CC PER PATIENT
  3. SPRIX [Suspect]
     Indication: PAIN
     Dosage: EACH NOSTRIL NASAL
     Route: 045
  4. SPRIX [Suspect]
     Indication: NEPHROLITHIASIS
     Dosage: EACH NOSTRIL NASAL
     Route: 045

REACTIONS (2)
  - ANAPHYLACTIC REACTION [None]
  - NASAL DISCOMFORT [None]
